FAERS Safety Report 8362751-6 (Version None)
Quarter: 2012Q2

REPORT INFORMATION
  Report Type: 
  Country: None (occurrence: None)
  Receive Date: 20120516
  Receipt Date: 20120507
  Transmission Date: 20120825
  Serious: Yes (Hospitalization)
  Sender: FDA-Public Use
  Company Number: PHHO2008CO12756

PATIENT
  Sex: Male
  Weight: 63 kg

DRUGS (2)
  1. TACROLIMUS [Suspect]
     Indication: LIVER TRANSPLANT
     Dosage: 6 MG, QD
     Route: 048
     Dates: start: 20081012, end: 20110126
  2. PREDNISOLONE [Suspect]
     Dosage: UNK
     Route: 048
     Dates: start: 20081015

REACTIONS (3)
  - CANDIDIASIS [None]
  - PNEUMONIA ESCHERICHIA [None]
  - DYSPNOEA [None]
